FAERS Safety Report 7564083-2 (Version None)
Quarter: 2011Q2

REPORT INFORMATION
  Report Type: 
  Country: None (occurrence: None)
  Receive Date: 20110622
  Receipt Date: 20110614
  Transmission Date: 20111010
  Serious: Yes (Other)
  Sender: FDA-Public Use
  Company Number: US-US-EMD SERONO, INC.-7017683

PATIENT
  Sex: Female
  Weight: 68 kg

DRUGS (7)
  1. ESTRADIOL [Concomitant]
     Indication: MENOPAUSE
  2. GABAPENTIN [Concomitant]
     Indication: MULTIPLE SCLEROSIS
  3. TOPROL-XL [Concomitant]
     Indication: HYPERTENSION
  4. REBIF [Suspect]
     Indication: MULTIPLE SCLEROSIS
     Route: 058
     Dates: start: 20080926, end: 20091104
  5. MEDROXYPROGESTERONE [Concomitant]
     Indication: MENOPAUSE
  6. VITAMIN B-12 [Concomitant]
     Indication: ASTHENIA
  7. REBIF [Suspect]
     Route: 058
     Dates: start: 20101001

REACTIONS (10)
  - PHYSICAL ABUSE [None]
  - DIARRHOEA [None]
  - PAIN [None]
  - HEADACHE [None]
  - FACIAL BONES FRACTURE [None]
  - BRAIN MIDLINE SHIFT [None]
  - INJECTION SITE MASS [None]
  - POST-TRAUMATIC STRESS DISORDER [None]
  - CENTRAL NERVOUS SYSTEM LESION [None]
  - WEIGHT DECREASED [None]
